FAERS Safety Report 8373809-X (Version None)
Quarter: 2012Q2

REPORT INFORMATION
  Report Type: 
  Country: None (occurrence: None)
  Receive Date: 20120521
  Receipt Date: 20120515
  Transmission Date: 20120825
  Serious: Yes (Life-Threatening)
  Sender: FDA-Public Use
  Company Number: FR-ASTRAZENECA-2012SE30993

PATIENT
  Age: 55 Year
  Sex: Male

DRUGS (6)
  1. CARBOCAINE [Suspect]
     Indication: LOCAL ANAESTHESIA
     Dosage: ONCE/SINGLE ADMINISTRATION
     Route: 065
     Dates: start: 20120117, end: 20120117
  2. PROPOFOL [Suspect]
     Indication: ANAESTHESIA
     Dosage: ONCE/SINGLE ADMINISTRATION
     Route: 042
     Dates: start: 20120117, end: 20120117
  3. CELOCURINE [Suspect]
     Indication: ANAESTHESIA
     Dosage: ONCE/SINGLE ADMINISTRATION
     Route: 065
     Dates: start: 20120117, end: 20120117
  4. XYLOCAINE [Suspect]
     Indication: LOCAL ANAESTHESIA
     Dosage: ONCE/SINGLE ADMINISTRATION
     Route: 065
     Dates: start: 20120117, end: 20120117
  5. SUFENTANIL CITRATE [Suspect]
     Indication: GENERAL ANAESTHESIA
     Dosage: ONCE/SINGLE ADMINISTRATION
     Route: 042
     Dates: start: 20120117, end: 20120117
  6. CEFAZOLIN [Suspect]
     Indication: ANTIBIOTIC PROPHYLAXIS
     Dosage: ONCE/SINGLE ADMINISTRATION
     Route: 042
     Dates: start: 20120117, end: 20120117

REACTIONS (3)
  - HYPOTENSION [None]
  - SHOCK [None]
  - BRONCHOSPASM [None]
